FAERS Safety Report 14343785 (Version 1)
Quarter: 2018Q1

REPORT INFORMATION
  Report Type: Report from Study
  Country: US (occurrence: US)
  Receive Date: 20180102
  Receipt Date: 20180102
  Transmission Date: 20180509
  Serious: Yes (Hospitalization, Other)
  Sender: FDA-Public Use
  Company Number: PHHY2017US149694

PATIENT
  Age: 10 Year
  Sex: Female
  Weight: 38.1 kg

DRUGS (71)
  1. FLONASE [Concomitant]
     Active Substance: FLUTICASONE PROPIONATE
     Indication: PNEUMONITIS
     Dosage: 1 DF, BID
     Route: 045
     Dates: start: 20160113
  2. MELATONIN [Concomitant]
     Active Substance: MELATONIN
     Indication: SLEEP DISORDER
     Dosage: 3 MG, QD
     Route: 048
     Dates: start: 20140528
  3. SINGULAIR [Concomitant]
     Active Substance: MONTELUKAST SODIUM
     Indication: ASTHMA
     Dosage: 5 MG, QD (HS)
     Route: 048
     Dates: start: 20130108
  4. LEVOCETIRIZINE [Concomitant]
     Active Substance: LEVOCETIRIZINE
     Indication: HYPERSENSITIVITY
     Dosage: 5 MG, QD
     Route: 048
     Dates: start: 20160812
  5. CETRIZINE [Concomitant]
     Active Substance: CETIRIZINE HYDROCHLORIDE
     Indication: ASTHMA
     Dosage: 10 MG, UNK
     Route: 048
     Dates: start: 20170913, end: 20170926
  6. LACTOBACILLUS ACIDOPHILUS [Concomitant]
     Active Substance: LACTOBACILLUS ACIDOPHILUS
     Indication: PROPHYLAXIS
     Dosage: 4 DF, BID
     Route: 048
     Dates: start: 20170918, end: 20170920
  7. RIFAMPIN. [Concomitant]
     Active Substance: RIFAMPIN
     Indication: INFECTION
     Dosage: 300 MG, QD
     Route: 048
     Dates: start: 20170913, end: 20170913
  8. PULMOZYME [Concomitant]
     Active Substance: DORNASE ALFA
     Indication: CYSTIC FIBROSIS LUNG
     Dosage: 1 DF (2.5 MG), QD
     Route: 055
     Dates: start: 20130106
  9. PREVACID [Concomitant]
     Active Substance: LANSOPRAZOLE
     Indication: GASTROOESOPHAGEAL REFLUX DISEASE
     Dosage: 30 MG, BID
     Route: 048
     Dates: start: 20130108
  10. CREON [Concomitant]
     Active Substance: PANCRELIPASE AMYLASE\PANCRELIPASE LIPASE\PANCRELIPASE PROTEASE
     Dosage: 18 DF (12), QD
     Route: 048
     Dates: start: 20170914, end: 20170914
  11. CREON [Concomitant]
     Active Substance: PANCRELIPASE AMYLASE\PANCRELIPASE LIPASE\PANCRELIPASE PROTEASE
     Dosage: 12 DF (12), QD
     Route: 048
     Dates: start: 20170926, end: 20170926
  12. LEVALBUTEROL. [Concomitant]
     Active Substance: LEVALBUTEROL
     Indication: CYSTIC FIBROSIS LUNG
     Dosage: 2 DF (2 PUFFS), TID
     Route: 055
     Dates: start: 20161201
  13. TOBRAMYCIN. [Concomitant]
     Active Substance: TOBRAMYCIN
     Dosage: 400 MG, QD
     Route: 042
     Dates: start: 20170913, end: 20170925
  14. SODIUM CHLORIDE. [Concomitant]
     Active Substance: SODIUM CHLORIDE
     Dosage: 4 ML, QD
     Route: 042
     Dates: start: 20170913, end: 20170925
  15. SODIUM CHLORIDE. [Concomitant]
     Active Substance: SODIUM CHLORIDE
     Dosage: 100 ML, QD
     Route: 042
     Dates: start: 20170913, end: 20170925
  16. HEPARIN [Concomitant]
     Active Substance: HEPARIN SODIUM
     Dosage: 10 U, QD
     Route: 042
     Dates: start: 20170915, end: 20170915
  17. LANSOPRAZOLE. [Concomitant]
     Active Substance: LANSOPRAZOLE
     Dosage: 30 MG, QD
     Route: 048
     Dates: start: 20170926, end: 20170926
  18. MEROPENEM. [Concomitant]
     Active Substance: MEROPENEM
     Indication: INFECTION
     Dosage: 1500 MG, QD
     Route: 048
     Dates: start: 20170925, end: 20170925
  19. AZITHROMYCIN ANHYDROUS. [Concomitant]
     Active Substance: AZITHROMYCIN ANHYDROUS
     Dosage: 250 MG, TIW
     Route: 048
     Dates: start: 20170922
  20. ALBUTEROL. [Concomitant]
     Active Substance: ALBUTEROL
     Dosage: 2 DF, TID
     Route: 055
     Dates: start: 20170920, end: 20170920
  21. HEPARIN [Concomitant]
     Active Substance: HEPARIN SODIUM
     Dosage: 10 U, BID
     Route: 042
     Dates: start: 20170921, end: 20170921
  22. IBUPROFEN. [Concomitant]
     Active Substance: IBUPROFEN
     Indication: PYREXIA
     Dosage: 400 MG, BID
     Route: 048
     Dates: start: 20170914, end: 20170914
  23. IBUPROFEN. [Concomitant]
     Active Substance: IBUPROFEN
     Dosage: 400 MG, TID
     Route: 048
     Dates: start: 20170915, end: 20170916
  24. IBUPROFEN. [Concomitant]
     Active Substance: IBUPROFEN
     Dosage: 400 MG, QD
     Route: 048
     Dates: start: 20170921, end: 20170921
  25. EPIPEN [Concomitant]
     Active Substance: EPINEPHRINE
     Indication: ANAPHYLACTIC REACTION
     Dosage: 1 DF, PRN
     Route: 030
     Dates: start: 20141015
  26. EPIPEN [Concomitant]
     Active Substance: EPINEPHRINE
     Dosage: 1 DF, PRN
     Route: 030
     Dates: start: 20170922
  27. CREON [Concomitant]
     Active Substance: PANCRELIPASE AMYLASE\PANCRELIPASE LIPASE\PANCRELIPASE PROTEASE
     Indication: NUTRITIONAL SUPPLEMENTATION
     Dosage: UNK UNK, QD
     Route: 048
     Dates: start: 20141015, end: 20170912
  28. CREON [Concomitant]
     Active Substance: PANCRELIPASE AMYLASE\PANCRELIPASE LIPASE\PANCRELIPASE PROTEASE
     Indication: PANCREATIC FAILURE
     Dosage: 3 DF (12), QD
     Route: 048
     Dates: start: 20170912, end: 20170912
  29. ALBUTEROL. [Concomitant]
     Active Substance: ALBUTEROL
     Dosage: 1 DF, QD
     Route: 055
     Dates: start: 20170921, end: 20170921
  30. HEPARIN [Concomitant]
     Active Substance: HEPARIN SODIUM
     Indication: PROPHYLAXIS
     Dosage: 100 U, QD
     Route: 042
     Dates: start: 20170913, end: 20170913
  31. HEPARIN [Concomitant]
     Active Substance: HEPARIN SODIUM
     Dosage: 10 U, BID
     Route: 042
     Dates: start: 20170914, end: 20170914
  32. IBUPROFEN. [Concomitant]
     Active Substance: IBUPROFEN
     Indication: PAIN
     Dosage: 400 MG, QD
     Route: 048
     Dates: start: 20170913, end: 20170913
  33. LACTOBACILLUS ACIDOPHILUS [Concomitant]
     Active Substance: LACTOBACILLUS ACIDOPHILUS
     Dosage: 4 DF, QD
     Route: 048
     Dates: start: 20170926, end: 20170926
  34. SULFAMETHOXAZOLE AND TRIMETHOPRIM [Concomitant]
     Active Substance: SULFAMETHOXAZOLE\TRIMETHOPRIM
     Indication: INFECTION
     Dosage: 1 DF, QD
     Route: 048
     Dates: start: 20170925, end: 20170926
  35. VITAMIN D3 [Concomitant]
     Active Substance: CHOLECALCIFEROL
     Indication: VITAMIN D DEFICIENCY
     Dosage: 50000 IU, WEEKLY
     Route: 048
     Dates: start: 20170412
  36. ALBUTEROL. [Concomitant]
     Active Substance: ALBUTEROL
     Dosage: 2 DF, TID
     Route: 055
     Dates: start: 20170925, end: 20170925
  37. HEPARIN [Concomitant]
     Active Substance: HEPARIN SODIUM
     Dosage: 10 U, QD
     Route: 042
     Dates: start: 20170917, end: 20170917
  38. HEPARIN [Concomitant]
     Active Substance: HEPARIN SODIUM
     Dosage: 100 U, QD
     Route: 042
     Dates: start: 20170919, end: 20170920
  39. HEPARIN [Concomitant]
     Active Substance: HEPARIN SODIUM
     Dosage: 10 U, QD
     Route: 042
     Dates: start: 20170926, end: 20170926
  40. LACTOBACILLUS ACIDOPHILUS [Concomitant]
     Active Substance: LACTOBACILLUS ACIDOPHILUS
     Dosage: 4 DF, TID
     Route: 048
     Dates: start: 20170925, end: 20170925
  41. RIFAMPIN. [Concomitant]
     Active Substance: RIFAMPIN
     Dosage: 300 MG, QD
     Route: 048
     Dates: start: 20170925, end: 20170925
  42. ORKAMBI [Concomitant]
     Active Substance: IVACAFTOR\LUMACAFTOR
     Indication: GENE MUTATION
     Dosage: 2 DF, BID
     Route: 048
     Dates: start: 20160608
  43. HYPERSOL [Concomitant]
     Indication: CYSTIC FIBROSIS LUNG
     Dosage: 1 DF (4ML), BID
     Route: 055
     Dates: start: 20130220
  44. CREON [Concomitant]
     Active Substance: PANCRELIPASE AMYLASE\PANCRELIPASE LIPASE\PANCRELIPASE PROTEASE
     Dosage: 20 DF (12), QD
     Route: 048
     Dates: start: 20170915, end: 20170915
  45. CREON [Concomitant]
     Active Substance: PANCRELIPASE AMYLASE\PANCRELIPASE LIPASE\PANCRELIPASE PROTEASE
     Dosage: 18 DF (12), QD
     Route: 048
     Dates: start: 20170919, end: 20170925
  46. ALBUTEROL. [Concomitant]
     Active Substance: ALBUTEROL
     Indication: CYSTIC FIBROSIS LUNG
     Dosage: 2 DF, QID
     Route: 055
     Dates: start: 20170912, end: 20170919
  47. ALBUTEROL. [Concomitant]
     Active Substance: ALBUTEROL
     Dosage: 2 DF, BID
     Route: 055
     Dates: start: 20170926, end: 20170926
  48. HEPARIN [Concomitant]
     Active Substance: HEPARIN SODIUM
     Dosage: 100 U, QD
     Route: 042
     Dates: start: 20170917, end: 20170917
  49. HEPARIN [Concomitant]
     Active Substance: HEPARIN SODIUM
     Dosage: 10 U, TID
     Route: 042
     Dates: start: 20170919, end: 20170920
  50. IBUPROFEN. [Concomitant]
     Active Substance: IBUPROFEN
     Dosage: 400 MG, BID
     Route: 048
     Dates: start: 20170917, end: 20170917
  51. LACTOBACILLUS ACIDOPHILUS [Concomitant]
     Active Substance: LACTOBACILLUS ACIDOPHILUS
     Dosage: 4 DF, QD
     Route: 048
     Dates: start: 20170922, end: 20170922
  52. LANSOPRAZOLE. [Concomitant]
     Active Substance: LANSOPRAZOLE
     Indication: GASTROOESOPHAGEAL REFLUX DISEASE
     Dosage: 30 MG, BID
     Route: 048
     Dates: start: 20170913, end: 20170925
  53. TOBI [Suspect]
     Active Substance: TOBRAMYCIN
     Indication: CYSTIC FIBROSIS
     Dosage: 300 MG, BID
     Route: 055
     Dates: start: 20170601
  54. ADVAIR HFA [Concomitant]
     Active Substance: FLUTICASONE PROPIONATE\SALMETEROL XINAFOATE
     Indication: CYSTIC FIBROSIS LUNG
     Dosage: 2 DF (2 PUFFS), BID
     Route: 055
     Dates: start: 20130522
  55. CREON [Concomitant]
     Active Substance: PANCRELIPASE AMYLASE\PANCRELIPASE LIPASE\PANCRELIPASE PROTEASE
     Dosage: 14 DF, (12) QD
     Route: 048
     Dates: start: 20170913, end: 20170913
  56. CREON [Concomitant]
     Active Substance: PANCRELIPASE AMYLASE\PANCRELIPASE LIPASE\PANCRELIPASE PROTEASE
     Dosage: 18 DF (12), QD
     Route: 048
     Dates: start: 20170916, end: 20170916
  57. CREON [Concomitant]
     Active Substance: PANCRELIPASE AMYLASE\PANCRELIPASE LIPASE\PANCRELIPASE PROTEASE
     Dosage: 20 DF (12), QD
     Route: 048
     Dates: start: 20170917, end: 20170918
  58. SODIUM CHLORIDE. [Concomitant]
     Active Substance: SODIUM CHLORIDE
     Indication: CYSTIC FIBROSIS LUNG
     Dosage: 4 ML, QD
     Route: 055
     Dates: start: 20170912, end: 20170912
  59. SODIUM CHLORIDE. [Concomitant]
     Active Substance: SODIUM CHLORIDE
     Dosage: 4 ML, QD
     Route: 042
     Dates: start: 20170926, end: 20170926
  60. ALBUTEROL. [Concomitant]
     Active Substance: ALBUTEROL
     Dosage: 2 DF, TID
     Dates: start: 20170921, end: 20170921
  61. HEPARIN [Concomitant]
     Active Substance: HEPARIN SODIUM
     Dosage: 10 U, TID
     Route: 042
     Dates: start: 20170916, end: 20170916
  62. HEPARIN [Concomitant]
     Active Substance: HEPARIN SODIUM
     Dosage: 10 U, QD
     Route: 042
     Dates: start: 20170924, end: 20170924
  63. AZITHROMYCIN ANHYDROUS. [Concomitant]
     Active Substance: AZITHROMYCIN ANHYDROUS
     Indication: PSEUDOMONAS INFECTION
     Dosage: 250 MG, TIW
     Route: 048
     Dates: start: 20130108
  64. MEGESTROL [Concomitant]
     Active Substance: MEGESTROL
     Indication: DECREASED APPETITE
     Dosage: 100 MG, QD
     Route: 048
     Dates: start: 20140709
  65. TOBRAMYCIN. [Concomitant]
     Active Substance: TOBRAMYCIN
     Indication: PSEUDOMONAS INFECTION
     Dosage: 300 MG, BID
     Route: 055
     Dates: start: 20170412
  66. ALBUTEROL. [Concomitant]
     Active Substance: ALBUTEROL
     Dosage: 2 DF, QID
     Route: 055
     Dates: start: 20170922, end: 20170924
  67. CYPROHEPATADINE [Concomitant]
     Active Substance: CYPROHEPTADINE HYDROCHLORIDE
     Indication: DECREASED APPETITE
     Dosage: 4 MG, QD
     Route: 048
     Dates: start: 20170925, end: 20170926
  68. HEPARIN [Concomitant]
     Active Substance: HEPARIN SODIUM
     Dosage: 10 U, BID
     Route: 042
     Dates: start: 20170918, end: 20170918
  69. HEPARIN [Concomitant]
     Active Substance: HEPARIN SODIUM
     Dosage: 10 U, QID
     Route: 042
     Dates: start: 20170922, end: 20170922
  70. HEPARIN [Concomitant]
     Active Substance: HEPARIN SODIUM
     Dosage: 10 U, TID
     Route: 042
     Dates: start: 20170923, end: 20170923
  71. RIFAMPIN. [Concomitant]
     Active Substance: RIFAMPIN
     Dosage: 300 MG, QD
     Route: 048
     Dates: start: 20170914, end: 20170914

REACTIONS (12)
  - Infective pulmonary exacerbation of cystic fibrosis [Recovered/Resolved]
  - Vitamin E decreased [Unknown]
  - Infective pulmonary exacerbation of cystic fibrosis [Unknown]
  - Blood chloride increased [Unknown]
  - Forced expiratory volume decreased [Unknown]
  - Bronchial wall thickening [Unknown]
  - Prothrombin time prolonged [Unknown]
  - Blood glucose increased [Unknown]
  - Blood urea decreased [Unknown]
  - Protein total decreased [Unknown]
  - Drug level increased [Unknown]
  - White blood cell count decreased [Unknown]

NARRATIVE: CASE EVENT DATE: 20170830
